FAERS Safety Report 14180523 (Version 2)
Quarter: 2017Q4

REPORT INFORMATION
  Report Type: Spontaneous
  Country: JP (occurrence: JP)
  Receive Date: 20171110
  Receipt Date: 20171214
  Transmission Date: 20180321
  Serious: Yes (Other)
  Sender: FDA-Public Use
  Company Number: JP-US WORLDMEDS, LLC-USW201706-000885

PATIENT
  Age: 70 Year
  Sex: Female
  Weight: 48 kg

DRUGS (21)
  1. FP-OD [Concomitant]
     Active Substance: SELEGILINE HYDROCHLORIDE
  2. CINAL [Concomitant]
     Active Substance: ASCORBIC ACID\CALCIUM PANTOTHENATE
  3. TSUMURA DAIKENCHUTO EXTRACT [Concomitant]
     Active Substance: HERBALS
  4. SENNOSIDE [Concomitant]
     Active Substance: SENNOSIDES
  5. REQUIP CR SRT [Concomitant]
  6. COMTAN [Concomitant]
     Active Substance: ENTACAPONE
  7. KENEI G ENEMA [Concomitant]
     Active Substance: GLYCERIN
  8. HERBESSER SRC [Concomitant]
  9. MOHRUS TAPE [Concomitant]
     Active Substance: KETOPROFEN
  10. APOMORPHINE HYDROCHLORIDE [Suspect]
     Active Substance: APOMORPHINE HYDROCHLORIDE
     Dates: start: 20130316, end: 20131002
  11. MENESIT [Concomitant]
     Active Substance: CARBIDOPA\LEVODOPA
  12. LIORESAL [Concomitant]
     Active Substance: BACLOFEN
  13. APOMORPHINE HYDROCHLORIDE [Suspect]
     Active Substance: APOMORPHINE HYDROCHLORIDE
     Dates: start: 20130312, end: 20130313
  14. APOMORPHINE HYDROCHLORIDE [Suspect]
     Active Substance: APOMORPHINE HYDROCHLORIDE
     Dates: start: 20130315, end: 20130315
  15. FRANDOL S [Concomitant]
     Active Substance: ISOSORBIDE DINITRATE
  16. TRERIEF [Concomitant]
     Active Substance: ZONISAMIDE
     Dates: start: 20131003
  17. EXCEGRAN [Concomitant]
     Active Substance: ZONISAMIDE
     Dates: end: 20131002
  18. APOMORPHINE HYDROCHLORIDE [Suspect]
     Active Substance: APOMORPHINE HYDROCHLORIDE
     Indication: PARKINSON^S DISEASE
     Route: 058
     Dates: start: 20130311, end: 20130311
  19. APOMORPHINE HYDROCHLORIDE [Suspect]
     Active Substance: APOMORPHINE HYDROCHLORIDE
     Dates: start: 20130314, end: 20130314
  20. SYMMETREL [Concomitant]
     Active Substance: AMANTADINE HYDROCHLORIDE
  21. GASMOTIN [Concomitant]
     Active Substance: MOSAPRIDE CITRATE

REACTIONS (3)
  - Somnolence [Recovered/Resolved]
  - Atrial fibrillation [Recovering/Resolving]
  - Cardiac failure congestive [Recovering/Resolving]

NARRATIVE: CASE EVENT DATE: 20130315
